FAERS Safety Report 9738780 (Version 1)
Quarter: 2013Q4

REPORT INFORMATION
  Report Type: Report from Study
  Country: CA (occurrence: CA)
  Receive Date: 20131209
  Receipt Date: 20131209
  Transmission Date: 20140711
  Serious: Yes (Hospitalization)
  Sender: FDA-Public Use
  Company Number: CA-JNJFOC-20131203331

PATIENT
  Age: 56 Year
  Sex: Male
  Weight: 93.7 kg

DRUGS (8)
  1. REMICADE [Suspect]
     Indication: CROHN^S DISEASE
     Dosage: 28TH INFUSION
     Route: 042
     Dates: start: 20131021
  2. REMICADE [Suspect]
     Indication: CROHN^S DISEASE
     Route: 042
     Dates: start: 20100329
  3. VITAMIN B [Concomitant]
     Route: 065
  4. TUMS [Concomitant]
     Route: 065
  5. QUESTRAN [Concomitant]
     Route: 065
  6. SULFASALAZINE [Concomitant]
     Route: 048
  7. ALLEGRA [Concomitant]
     Route: 065
  8. PREDNISONE [Concomitant]
     Route: 065

REACTIONS (1)
  - Nephrolithiasis [Not Recovered/Not Resolved]
